FAERS Safety Report 7148463-5 (Version None)
Quarter: 2010Q4

REPORT INFORMATION
  Report Type: 
  Country: None (occurrence: None)
  Receive Date: 20101209
  Receipt Date: 20101129
  Transmission Date: 20110411
  Serious: Yes (Hospitalization)
  Sender: FDA-Public Use
  Company Number: PHHY2010AU80091

PATIENT
  Sex: Female

DRUGS (1)
  1. EXELON [Suspect]
     Route: 062

REACTIONS (5)
  - DERMATITIS [None]
  - ERYTHEMA [None]
  - FALL [None]
  - PRURITUS [None]
  - RIB FRACTURE [None]
